FAERS Safety Report 7530353-7 (Version None)
Quarter: 2011Q2

REPORT INFORMATION
  Report Type: 
  Country: None (occurrence: None)
  Receive Date: 20110607
  Receipt Date: 20110606
  Transmission Date: 20111010
  Serious: Yes (Hospitalization, Other)
  Sender: FDA-Public Use
  Company Number: US-UCBSA-017725

PATIENT
  Sex: Male
  Weight: 118 kg

DRUGS (3)
  1. CIMZIA [Suspect]
     Indication: CROHN'S DISEASE
     Route: 058
     Dates: start: 20081024
  2. CIMZIA [Suspect]
     Route: 058
  3. CIMZIA [Suspect]
     Route: 058
     Dates: end: 20110303

REACTIONS (6)
  - ABSCESS LIMB [None]
  - ASTHENIA [None]
  - URINARY TRACT INFECTION [None]
  - CYSTITIS [None]
  - HYPONATRAEMIA [None]
  - DIARRHOEA [None]
